FAERS Safety Report 16805655 (Version 1)
Quarter: 2019Q3

REPORT INFORMATION
  Report Type: Spontaneous
  Country: US (occurrence: US)
  Receive Date: 20190724
  Receipt Date: 20190724
  Transmission Date: 20191005
  Serious: No
  Sender: FDA-Public Use
  Company Number: None

PATIENT
  Age: 85 Year
  Sex: Female
  Weight: 56.7 kg

DRUGS (15)
  1. CPAP [Concomitant]
     Active Substance: DEVICE
  2. MAGNESIUM [Concomitant]
     Active Substance: MAGNESIUM
  3. AMLODIPINE [Concomitant]
     Active Substance: AMLODIPINE BESYLATE
  4. ASPIRIN 81MG [Concomitant]
     Active Substance: ASPIRIN
  5. CALCIUM [Concomitant]
     Active Substance: CALCIUM
  6. LOSARTAN 100MG [Suspect]
     Active Substance: LOSARTAN
  7. ATENOLOL. [Concomitant]
     Active Substance: ATENOLOL
  8. COQ10 [Concomitant]
     Active Substance: UBIDECARENONE
  9. MULTO VITAMINS [Concomitant]
  10. CLINDAMYCIN. [Concomitant]
     Active Substance: CLINDAMYCIN
  11. LEVOTHYROXINE. [Concomitant]
     Active Substance: LEVOTHYROXINE
  12. CRESTOR [Concomitant]
     Active Substance: ROSUVASTATIN CALCIUM
  13. B6 [Concomitant]
     Active Substance: PYRIDOXINE HYDROCHLORIDE
  14. ZANEX (ZOLPIDEM) [Concomitant]
  15. OLMESARTAN [Concomitant]
     Active Substance: OLMESARTAN

REACTIONS (2)
  - Drug ineffective [None]
  - Blood pressure increased [None]
